FAERS Safety Report 12802469 (Version 4)
Quarter: 2019Q1

REPORT INFORMATION
  Report Type: Spontaneous
  Country: GB (occurrence: GB)
  Receive Date: 20161003
  Receipt Date: 20190107
  Transmission Date: 20190417
  Serious: Yes (Other)
  Sender: FDA-Public Use
  Company Number: GB-CONCORDIA PHARMACEUTICALS INC.-E2B_00007857

PATIENT
  Age: 32 Year
  Sex: Female

DRUGS (4)
  1. METHYLPREDNISOLONE. [Suspect]
     Active Substance: METHYLPREDNISOLONE
     Indication: CONDITION AGGRAVATED
     Route: 040
  2. AZATHIOPRINE. [Suspect]
     Active Substance: AZATHIOPRINE
  3. PREDNISOLONE. [Suspect]
     Active Substance: PREDNISOLONE
  4. METHYLPREDNISOLONE. [Suspect]
     Active Substance: METHYLPREDNISOLONE
     Indication: POLYMYOSITIS
     Route: 040

REACTIONS (4)
  - Maternal exposure during pregnancy [Unknown]
  - Cytomegalovirus infection [Unknown]
  - Duodenal ulcer [Unknown]
  - HELLP syndrome [Unknown]
